FAERS Safety Report 5683566-3 (Version None)
Quarter: 2008Q1

REPORT INFORMATION
  Report Type: 
  Country: None (occurrence: None)
  Receive Date: 20080328
  Receipt Date: 20080319
  Transmission Date: 20080703
  Serious: Yes (Death)
  Sender: FDA-Public Use
  Company Number: GB-RANBAXY-2007RR-09504

PATIENT

DRUGS (2)
  1. IBUPROFEN TABLETS BP 200MG [Suspect]
     Route: 065
  2. THEOPHYLLINE [Suspect]
     Route: 065

REACTIONS (4)
  - CARDIAC ARREST [None]
  - LETHARGY [None]
  - OVERDOSE [None]
  - TACHYCARDIA [None]
